FAERS Safety Report 12803592 (Version 1)
Quarter: 2016Q4

REPORT INFORMATION
  Report Type: Spontaneous
  Country: US (occurrence: US)
  Receive Date: 20161003
  Receipt Date: 20161003
  Transmission Date: 20170207
  Serious: No
  Sender: FDA-Public Use
  Company Number: US-BAYER-2016-187974

PATIENT

DRUGS (2)
  1. ALEVE [Suspect]
     Active Substance: NAPROXEN SODIUM
     Indication: MUSCULOSKELETAL PAIN
     Dosage: UNK, BID
  2. ALEVE [Suspect]
     Active Substance: NAPROXEN SODIUM
     Indication: ROTATOR CUFF SYNDROME

REACTIONS (1)
  - Peripheral swelling [Unknown]
